FAERS Safety Report 8432147-7 (Version None)
Quarter: 2012Q2

REPORT INFORMATION
  Report Type: 
  Country: None (occurrence: None)
  Receive Date: 20120613
  Receipt Date: 20120604
  Transmission Date: 20120825
  Serious: Yes (Hospitalization, Other)
  Sender: FDA-Public Use
  Company Number: PHHY2012BR049910

PATIENT
  Age: 69 Year
  Sex: Male

DRUGS (1)
  1. DICLOFENAC SODIUM [Suspect]
     Route: 048

REACTIONS (4)
  - DIABETES MELLITUS [None]
  - DEPRESSION [None]
  - HYPERTENSION [None]
  - BONE METABOLISM DISORDER [None]
